FAERS Safety Report 8789271 (Version 1)
Quarter: 2012Q4

REPORT INFORMATION
  Report Type: Spontaneous
  Country: IT (occurrence: None)
  Receive Date: 20120905
  Receipt Date: 20120905
  Transmission Date: 20130627
  Serious: Yes (Death, Hospitalization)
  Sender: FDA-Public Use
  Company Number: GER/ITL/12/0025593

PATIENT
  Age: 79 Year
  Sex: Female

DRUGS (6)
  1. RAMIPRIL (RAMIPRIL) [Suspect]
     Indication: DRUG USE FOR UNKNOWN INDICATION
  2. KETOPROFEN [Suspect]
     Indication: DRUG USE FOR UNKNOWN INDICATION
     Dosage: 1 d
     Route: 048
  3. CIPROFLOXACIN (CIPROFLOXACIN) [Concomitant]
  4. ASPIRIN (ACETYLSALICYLIC ACID) [Concomitant]
  5. CARVEDILOL (CARVEDILOL) [Concomitant]
  6. OMEPRAZOLE (OMEPRAZOLE) [Concomitant]

REACTIONS (8)
  - Renal failure acute [None]
  - Depressive symptom [None]
  - Cystitis [None]
  - Musculoskeletal pain [None]
  - Cardiac failure [None]
  - Pleural effusion [None]
  - General physical health deterioration [None]
  - Metabolic acidosis [None]
